FAERS Safety Report 11926097 (Version 1)
Quarter: 2016Q1

REPORT INFORMATION
  Report Type: Spontaneous
  Country: JP (occurrence: JP)
  Receive Date: 20160119
  Receipt Date: 20160119
  Transmission Date: 20160526
  Serious: Yes (Hospitalization)
  Sender: FDA-Public Use
  Company Number: JP-009507513-1511JPN011167

PATIENT
  Age: 65 Year
  Sex: Male

DRUGS (1)
  1. LIPOVAS TABLETS 5 [Suspect]
     Active Substance: PRAVASTATIN SODIUM
     Indication: HYPERCHOLESTEROLAEMIA
     Dosage: DAILY DOSE UNKNOWN
     Route: 048
     Dates: start: 201307

REACTIONS (1)
  - Pneumonia [Unknown]
